FAERS Safety Report 11966714 (Version 1)
Quarter: 2016Q1

REPORT INFORMATION
  Report Type: Spontaneous
  Country: US (occurrence: US)
  Receive Date: 20160127
  Receipt Date: 20160127
  Transmission Date: 20160526
  Serious: No
  Sender: FDA-Public Use
  Company Number: US-HORIZON-PEN-0016-2016

PATIENT
  Age: 67 Year
  Sex: Female

DRUGS (1)
  1. PENNSAID [Suspect]
     Active Substance: DICLOFENAC SODIUM
     Indication: ARTHRALGIA
     Dosage: UNKNOWN DOSE TWICE DAILY
     Route: 061
     Dates: start: 20160120

REACTIONS (2)
  - Off label use [Unknown]
  - Product quality issue [Unknown]
